FAERS Safety Report 10978133 (Version 6)
Quarter: 2015Q3

REPORT INFORMATION
  Report Type: Report from Study
  Country: US (occurrence: US)
  Receive Date: 20150402
  Receipt Date: 20150828
  Transmission Date: 20151125
  Serious: Yes (Other)
  Sender: FDA-Public Use
  Company Number: US-PFIZER INC-2015103292

PATIENT
  Age: 77 Year
  Sex: Male
  Weight: 67 kg

DRUGS (14)
  1. TIVANTINIB [Suspect]
     Active Substance: TIVANTINIB
     Indication: COLON CANCER METASTATIC
     Dosage: 240 MG, CYCLIC (2X PER DAY: C1DAYS 8-35; C 2 ON DAYS 1-28)
     Route: 048
     Dates: start: 20150108, end: 20150306
  2. OMEPRAZOLE EC [Concomitant]
     Dosage: UNK
  3. LOPERAMIDE [Concomitant]
     Active Substance: LOPERAMIDE
     Dosage: UNK
  4. COENZYME Q10 [Concomitant]
     Active Substance: UBIDECARENONE
     Dosage: UNK
  5. TEMSIROLIMUS [Suspect]
     Active Substance: TEMSIROLIMUS
     Indication: COLON CANCER METASTATIC
     Dosage: 20 MG, CYCLIC (OVER 30 MINUTES: C1 ON DAYS 1, 8, 15, 22, AND 29; C2 DAYS 1, 8, 15, 22)
     Route: 042
     Dates: start: 20150108, end: 20150305
  6. PERCOCET [Concomitant]
     Active Substance: ACETAMINOPHEN\OXYCODONE HYDROCHLORIDE
     Dosage: UNK
  7. DIPHENOXYLATE-ATROPINE [Concomitant]
     Dosage: UNK
  8. METOPROLOL [Concomitant]
     Active Substance: METOPROLOL
     Indication: HYPERTENSION
     Dosage: UNK
     Dates: start: 2004
  9. HYDROCORTISONE. [Concomitant]
     Active Substance: HYDROCORTISONE
     Dosage: UNK
  10. RANITIDINE [Concomitant]
     Active Substance: RANITIDINE\RANITIDINE HYDROCHLORIDE
     Dosage: UNK
  11. HEPARIN [Concomitant]
     Active Substance: HEPARIN SODIUM
     Dosage: UNK
  12. DICLOFENAC SODIUM. [Concomitant]
     Active Substance: DICLOFENAC SODIUM
     Dosage: UNK
  13. FLUTICASONE [Concomitant]
     Active Substance: FLUTICASONE\FLUTICASONE PROPIONATE
     Dosage: UNK
  14. PROCHLORPERAZINE. [Concomitant]
     Active Substance: PROCHLORPERAZINE
     Dosage: UNK

REACTIONS (2)
  - Conduction disorder [Not Recovered/Not Resolved]
  - Atrial tachycardia [Recovered/Resolved with Sequelae]

NARRATIVE: CASE EVENT DATE: 20150311
